FAERS Safety Report 24430474 (Version 1)
Quarter: 2024Q4

REPORT INFORMATION
  Report Type: Spontaneous
  Country: US (occurrence: US)
  Receive Date: 20241013
  Receipt Date: 20241013
  Transmission Date: 20250114
  Serious: Yes (Hospitalization, Other)
  Sender: ALEXION PHARMACEUTICALS
  Company Number: US-AstraZeneca-CH-00713055A

PATIENT
  Age: 81 Year

DRUGS (4)
  1. IMFINZI [Suspect]
     Active Substance: DURVALUMAB
     Indication: Lung carcinoma cell type unspecified stage III
     Dosage: UNK, Q4W
     Route: 065
  2. IMFINZI [Suspect]
     Active Substance: DURVALUMAB
     Dosage: UNK, Q4W
  3. IMFINZI [Suspect]
     Active Substance: DURVALUMAB
     Dosage: UNK, Q4W
     Route: 065
  4. IMFINZI [Suspect]
     Active Substance: DURVALUMAB
     Dosage: UNK, Q4W

REACTIONS (11)
  - Pain in extremity [Unknown]
  - Hip arthroplasty [Unknown]
  - Arthralgia [Unknown]
  - Transient ischaemic attack [Unknown]
  - Heart disease congenital [Unknown]
  - Hip arthroplasty [Unknown]
  - Hypokinesia [Unknown]
  - Blepharitis [Unknown]
  - Pneumonitis [Unknown]
  - Alopecia [Unknown]
  - Lung neoplasm malignant [Unknown]
